FAERS Safety Report 4343901-5 (Version None)
Quarter: 2004Q2

REPORT INFORMATION
  Report Type: 
  Country: None (occurrence: None)
  Receive Date: 20040421
  Receipt Date: 20040421
  Transmission Date: 20050107
  Serious: Yes (Hospitalization)
  Sender: FDA-Public Use
  Company Number: None

PATIENT
  Age: 78 Year
  Sex: Female
  Weight: 50.8 kg

DRUGS (9)
  1. DILAUDID [Suspect]
     Indication: BACK PAIN
     Dosage: MEDTRONIC PUMP CONC: 3MG/ML
  2. DILAUDID [Suspect]
     Indication: OSTEOARTHRITIS
     Dosage: MEDTRONIC PUMP CONC: 3MG/ML
  3. POTASSIUM [Concomitant]
  4. FOLIC ACID [Concomitant]
  5. PREDNISONE [Concomitant]
  6. FUROSEMIDE [Concomitant]
  7. ACTONEL [Concomitant]
  8. TREXALL [Concomitant]
  9. MAG [Concomitant]

REACTIONS (6)
  - ABDOMINAL DISTENSION [None]
  - ABDOMINAL PAIN [None]
  - ASPIRATION [None]
  - CARDIO-RESPIRATORY ARREST [None]
  - CONSTIPATION [None]
  - INFARCTION [None]
